FAERS Safety Report 7715403-7 (Version None)
Quarter: 2011Q3

REPORT INFORMATION
  Report Type: 
  Country: None (occurrence: None)
  Receive Date: 20110829
  Receipt Date: 20110822
  Transmission Date: 20111222
  Serious: Yes (Hospitalization, Other)
  Sender: FDA-Public Use
  Company Number: FR-PFIZER INC-2011194516

PATIENT
  Age: 65 Year
  Sex: Female

DRUGS (2)
  1. SUTENT [Suspect]
     Dosage: 50 MG, UNK
  2. SUTENT [Suspect]
     Indication: GASTROINTESTINAL STROMAL TUMOUR
     Dosage: 37.5 MG, FOR 28 DAYS ON AND 15 DAYS OFF

REACTIONS (7)
  - BONE PAIN [None]
  - VOMITING [None]
  - INTESTINAL OBSTRUCTION [None]
  - BURNING SENSATION [None]
  - MUSCLE RUPTURE [None]
  - CONSTIPATION [None]
  - SWELLING [None]
